FAERS Safety Report 20865160 (Version 1)
Quarter: 2022Q2

REPORT INFORMATION
  Report Type: Spontaneous
  Country: ES (occurrence: ES)
  Receive Date: 20220524
  Receipt Date: 20220524
  Transmission Date: 20220720
  Serious: Yes (Other)
  Sender: FDA-Public Use
  Company Number: None

PATIENT
  Age: 41 Year
  Sex: Female
  Weight: 65 kg

DRUGS (2)
  1. TRIAMCINOLONE ACETONIDE [Suspect]
     Active Substance: TRIAMCINOLONE ACETONIDE
     Indication: Spondylitis
     Dosage: 1 DF, TOTAL
     Route: 030
     Dates: start: 20220421
  2. CELESTONE CRONODOSE P [Concomitant]
     Dosage: 125 MG, TOTAL
     Route: 030
     Dates: start: 20220421

REACTIONS (2)
  - Vasodilatation [Recovering/Resolving]
  - Vasculitis [Recovering/Resolving]

NARRATIVE: CASE EVENT DATE: 20220421
